FAERS Safety Report 5490693-2 (Version None)
Quarter: 2007Q4

REPORT INFORMATION
  Report Type: 
  Country: None (occurrence: None)
  Receive Date: 20071019
  Receipt Date: 20071017
  Transmission Date: 20080405
  Serious: Yes (Other)
  Sender: FDA-Public Use
  Company Number: A0688211A

PATIENT
  Age: 83 Year
  Sex: Female

DRUGS (1)
  1. CITRUCEL REGULAR SUSPENSION [Suspect]

REACTIONS (2)
  - DRUG INEFFECTIVE [None]
  - INCONTINENCE [None]
